FAERS Safety Report 25133200 (Version 2)
Quarter: 2025Q2

REPORT INFORMATION
  Report Type: Spontaneous
  Country: AU (occurrence: AU)
  Receive Date: 20250328
  Receipt Date: 20250404
  Transmission Date: 20250716
  Serious: Yes (Hospitalization)
  Sender: RECORDATI
  Company Number: AU-RECORDATI RARE DISEASE INC.-2025002052

PATIENT
  Sex: Male

DRUGS (4)
  1. ISTURISA [Interacting]
     Active Substance: OSILODROSTAT PHOSPHATE
     Indication: Cushing^s syndrome
     Dosage: 6 MG, BID
     Route: 048
     Dates: start: 20241016, end: 20250214
  2. AMIODARONE [Interacting]
     Active Substance: AMIODARONE
     Indication: Atrial fibrillation
     Dosage: 20 MILLIGRAM, QD
     Dates: start: 20241022
  3. DEXAMETHASONE [Concomitant]
     Active Substance: DEXAMETHASONE
     Indication: Adrenocortical steroid therapy
     Dosage: 1 MG, QD
     Dates: start: 20241016, end: 202502
  4. DEXAMETHASONE [Concomitant]
     Active Substance: DEXAMETHASONE
     Dates: start: 202502

REACTIONS (3)
  - Sepsis [Unknown]
  - Adrenal insufficiency [Recovered/Resolved]
  - Labelled drug-drug interaction issue [Recovered/Resolved]

NARRATIVE: CASE EVENT DATE: 20250101
